FAERS Safety Report 6827350-3 (Version None)
Quarter: 2010Q3

REPORT INFORMATION
  Report Type: 
  Country: None (occurrence: None)
  Receive Date: 20100709
  Receipt Date: 20070111
  Transmission Date: 20110219
  Serious: No
  Sender: FDA-Public Use
  Company Number: US-PFIZER INC-2007003986

PATIENT
  Sex: Female
  Weight: 81.65 kg

DRUGS (4)
  1. CHANTIX [Suspect]
     Indication: SMOKING CESSATION THERAPY
     Dates: start: 20061001
  2. INSULIN [Concomitant]
  3. VITAMINS [Concomitant]
  4. AMITRIPTYLINE HYDROCHLORIDE [Concomitant]

REACTIONS (1)
  - BLOOD GLUCOSE INCREASED [None]
